FAERS Safety Report 15061708 (Version 2)
Quarter: 2018Q3

REPORT INFORMATION
  Report Type: Spontaneous
  Country: US (occurrence: US)
  Receive Date: 20180625
  Receipt Date: 20180911
  Transmission Date: 20181010
  Serious: No
  Sender: FDA-Public Use
  Company Number: US-009507513-1806USA008075

PATIENT
  Sex: Male

DRUGS (1)
  1. PROPECIA [Suspect]
     Active Substance: FINASTERIDE
     Route: 048

REACTIONS (5)
  - Product taste abnormal [Unknown]
  - No adverse event [Unknown]
  - Product counterfeit [Unknown]
  - Product odour abnormal [Unknown]
  - Counterfeit product administered [Unknown]
